FAERS Safety Report 21358627 (Version 1)
Quarter: 2022Q3

REPORT INFORMATION
  Report Type: Other
  Country: CN (occurrence: CN)
  Receive Date: 20220921
  Receipt Date: 20220921
  Transmission Date: 20221026
  Serious: Yes (Other)
  Sender: FDA-Public Use
  Company Number: CN-GE HEALTHCARE-2022CSU006688

PATIENT
  Age: 47 Year
  Sex: Male
  Weight: 55 kg

DRUGS (2)
  1. OMNIPAQUE [Suspect]
     Active Substance: IOHEXOL
     Indication: Computerised tomogram thorax
     Dosage: 30 GM, SINGLE
     Route: 040
     Dates: start: 20220906, end: 20220906
  2. OMNIPAQUE [Suspect]
     Active Substance: IOHEXOL
     Indication: Lung disorder

REACTIONS (4)
  - Amaurosis [Recovering/Resolving]
  - Tachypnoea [Recovering/Resolving]
  - Dizziness [Recovering/Resolving]
  - Erythema [Recovering/Resolving]

NARRATIVE: CASE EVENT DATE: 20220906
